FAERS Safety Report 9398491 (Version 1)
Quarter: 2013Q3

REPORT INFORMATION
  Report Type: Report from Study
  Country: TH (occurrence: TH)
  Receive Date: 20130712
  Receipt Date: 20130712
  Transmission Date: 20140515
  Serious: Yes (Hospitalization, Other)
  Sender: FDA-Public Use
  Company Number: TH-BRISTOL-MYERS SQUIBB COMPANY-16477713

PATIENT
  Age: 72 Year
  Sex: Female

DRUGS (4)
  1. SAXAGLIPTIN [Suspect]
     Indication: TYPE 2 DIABETES MELLITUS
     Dosage: INTER ON 27FEB11,RESTARTED ON 21MAR12; RECEIVED THE LAST DOSE ON 16-JAN-2013
     Dates: start: 20110127
  2. METFORMIN HCL [Suspect]
     Indication: TYPE 2 DIABETES MELLITUS
     Dosage: BEFOR RAND-27FEB12 1700MG,3MAR12-CONT 850MG
  3. GLICLAZIDE [Suspect]
     Indication: TYPE 2 DIABETES MELLITUS
     Dosage: BEFORE RAND-27FE12 320MG,3MAR-11MAR12 80MG,12MAR-20MAR12 120MG,21MAR-6AP12 240MG?16DE12-CON-160MG
  4. ASPIRIN [Concomitant]
     Dosage: 1DF:{100MG

REACTIONS (2)
  - Dizziness [Recovered/Resolved]
  - Hypoglycaemia [Recovering/Resolving]
